FAERS Safety Report 10051138 (Version 2)
Quarter: 2014Q2

REPORT INFORMATION
  Report Type: Spontaneous
  Country: US (occurrence: US)
  Receive Date: 20140401
  Receipt Date: 20140401
  Transmission Date: 20141212
  Serious: No
  Sender: FDA-Public Use
  Company Number: US-ASTRAZENECA-2011SE61136

PATIENT
  Age: 78 Year
  Sex: Female

DRUGS (12)
  1. NEXIUM [Suspect]
     Indication: GASTROOESOPHAGEAL REFLUX DISEASE
     Route: 048
  2. PRILOSEC [Suspect]
     Route: 048
  3. ALTACE [Concomitant]
  4. PROPYLTHIOURACIL [Concomitant]
  5. NAPROXEN [Concomitant]
  6. LORAZEPAM [Concomitant]
  7. VIT D [Concomitant]
  8. PYRIDOSTIGMINE BROM [Concomitant]
  9. ATORVASTATIN [Concomitant]
  10. HYOSCYAMINE [Concomitant]
  11. ASA [Concomitant]
  12. LATANOPROST [Concomitant]

REACTIONS (2)
  - Gastrooesophageal reflux disease [Unknown]
  - Drug ineffective [Unknown]
